FAERS Safety Report 10272099 (Version 1)
Quarter: 2014Q3

REPORT INFORMATION
  Report Type: Spontaneous
  Country: US (occurrence: US)
  Receive Date: 20140702
  Receipt Date: 20140702
  Transmission Date: 20150326
  Serious: No
  Sender: FDA-Public Use
  Company Number: US-009507513-1407USA000028

PATIENT
  Sex: Female

DRUGS (1)
  1. PROVENTIL [Suspect]
     Active Substance: ALBUTEROL
     Dosage: PROVENTIL INHR EA 90 MCG ,1 STANDARD PACKAGE CANISTER OF 6.7
     Route: 055

REACTIONS (2)
  - Drug dose omission [Unknown]
  - Sinusitis [Unknown]
